FAERS Safety Report 15735108 (Version 1)
Quarter: 2018Q4

REPORT INFORMATION
  Report Type: Spontaneous
  Country: GB (occurrence: GB)
  Receive Date: 20181218
  Receipt Date: 20181218
  Transmission Date: 20190205
  Serious: Yes (Other)
  Sender: FDA-Public Use
  Company Number: GB-BAYER-2018-229392

PATIENT
  Age: 46 Year
  Sex: Female

DRUGS (6)
  1. CIPROXIN [Suspect]
     Active Substance: CIPROFLOXACIN
     Dosage: 1500 MG, QD
     Route: 048
     Dates: start: 20181108, end: 20181117
  2. IBUPROFEN. [Concomitant]
     Active Substance: IBUPROFEN
     Dosage: UNK
  3. OXYCODONE [Concomitant]
     Active Substance: OXYCODONE
     Dosage: UNK
  4. CODEINE [Concomitant]
     Active Substance: CODEINE
     Dosage: UNK
  5. PARACETAMOL [Concomitant]
     Active Substance: ACETAMINOPHEN
     Dosage: UNK
  6. LINEZOLID. [Suspect]
     Active Substance: LINEZOLID
     Dosage: 1200 MG, QD
     Route: 048
     Dates: start: 20181108, end: 20181117

REACTIONS (5)
  - Glossodynia [Recovering/Resolving]
  - Diarrhoea [Recovered/Resolved]
  - Oropharyngeal pain [Recovering/Resolving]
  - Sleep disorder [Unknown]
  - Appetite disorder [Unknown]

NARRATIVE: CASE EVENT DATE: 20181109
